FAERS Safety Report 8344557-7 (Version None)
Quarter: 2012Q2

REPORT INFORMATION
  Report Type: 
  Country: None (occurrence: None)
  Receive Date: 20120508
  Receipt Date: 20120425
  Transmission Date: 20120825
  Serious: Yes (Other)
  Sender: FDA-Public Use
  Company Number: CA-ROCHE-1063048

PATIENT
  Age: 10 Month
  Sex: Male
  Weight: 6 kg

DRUGS (9)
  1. TAMIFLU [Suspect]
     Indication: PRODUCT USED FOR UNKNOWN INDICATION
     Route: 048
  2. VITAMIN D [Concomitant]
     Route: 065
  3. RANITIDINE [Concomitant]
     Route: 065
  4. SEPTRA [Concomitant]
     Route: 065
  5. DOMPERIDONE [Concomitant]
     Route: 065
  6. FERROUS SULFATE TAB [Concomitant]
     Route: 065
  7. NYSTATIN [Concomitant]
     Dosage: 100000 UNIT/ML
     Route: 065
  8. PANCREATIC ENZYMES [Concomitant]
     Route: 065
  9. VITAMIN E [Concomitant]
     Route: 065

REACTIONS (4)
  - ALANINE AMINOTRANSFERASE INCREASED [None]
  - FONTANELLE BULGING [None]
  - ASPARTATE AMINOTRANSFERASE INCREASED [None]
  - GAMMA-GLUTAMYLTRANSFERASE INCREASED [None]
